FAERS Safety Report 4523702-5 (Version None)
Quarter: 2004Q4

REPORT INFORMATION
  Report Type: 
  Country: None (occurrence: None)
  Receive Date: 20041210
  Receipt Date: 20041129
  Transmission Date: 20050328
  Serious: Yes (Hospitalization)
  Sender: FDA-Public Use
  Company Number: FR-GLAXOSMITHKLINE-B0358728A

PATIENT
  Age: 72 Year
  Sex: Female

DRUGS (5)
  1. ZOPHREN [Suspect]
     Route: 042
  2. FARMORUBICINE [Suspect]
     Indication: BREAST CANCER
     Dosage: 117MG PER DAY
     Route: 042
     Dates: start: 20020101, end: 20041008
  3. SOLUDECADRON [Suspect]
     Route: 042
  4. FLUOROURACIL [Suspect]
     Indication: BREAST CANCER
     Dosage: 588MG PER DAY
     Route: 042
     Dates: start: 20020101, end: 20041008
  5. ENDOXAN [Suspect]
     Indication: BREAST CANCER
     Dosage: 588MG PER DAY
     Route: 042
     Dates: start: 20020101, end: 20041008

REACTIONS (3)
  - ABDOMINAL PAIN [None]
  - COLITIS ISCHAEMIC [None]
  - RECTAL HAEMORRHAGE [None]
